FAERS Safety Report 8190302-8 (Version None)
Quarter: 2012Q1

REPORT INFORMATION
  Report Type: 
  Country: None (occurrence: None)
  Receive Date: 20120307
  Receipt Date: 20120229
  Transmission Date: 20120608
  Serious: Yes (Other)
  Sender: FDA-Public Use
  Company Number: US-EISAI INC-E3810-05355-SPO-US

PATIENT
  Age: 72 Year
  Sex: Male

DRUGS (1)
  1. ACIPHEX [Suspect]
     Route: 048

REACTIONS (2)
  - BLOOD PRESSURE INCREASED [None]
  - CREATININE RENAL CLEARANCE DECREASED [None]
